FAERS Safety Report 4742098-7 (Version None)
Quarter: 2005Q3

REPORT INFORMATION
  Report Type: 
  Country: None (occurrence: None)
  Receive Date: 20050808
  Receipt Date: 20050725
  Transmission Date: 20060218
  Serious: Yes (Death)
  Sender: FDA-Public Use
  Company Number: EWC050644675

PATIENT
  Age: 69 Year
  Sex: Male

DRUGS (8)
  1. ALIMTA [Suspect]
     Indication: LUNG CARCINOMA CELL TYPE UNSPECIFIED STAGE IV
     Dosage: 770 MG
     Dates: start: 20050609, end: 20050614
  2. CARBOPLATIN [Concomitant]
  3. LAKTULOSE (LACTULOSE) [Concomitant]
  4. NEXIUM [Concomitant]
  5. NORVASC [Concomitant]
  6. GARAMYCIN [Concomitant]
  7. PENICILLIN (PHENOXYMETHYLPENICILLIN BENZATHINE) [Concomitant]
  8. DECADRON [Concomitant]

REACTIONS (3)
  - LUNG CARCINOMA CELL TYPE UNSPECIFIED STAGE IV [None]
  - NEUTROPENIA [None]
  - SEPSIS [None]
